FAERS Safety Report 25805737 (Version 2)
Quarter: 2025Q4

REPORT INFORMATION
  Report Type: Spontaneous
  Country: US (occurrence: US)
  Receive Date: 20250916
  Receipt Date: 20251017
  Transmission Date: 20260118
  Serious: No
  Sender: GRANULES PHARMACEUTICALS INC
  Company Number: US-GRANULES-US-2025GRASPO00502

PATIENT
  Age: 64 Year
  Sex: Female

DRUGS (1)
  1. METHOCARBAMOL [Suspect]
     Active Substance: METHOCARBAMOL
     Indication: Muscle spasms
     Route: 048
     Dates: start: 20250826

REACTIONS (2)
  - Hypersensitivity [Unknown]
  - Product physical issue [Unknown]

NARRATIVE: CASE EVENT DATE: 20250826
